FAERS Safety Report 12601414 (Version 2)
Quarter: 2016Q3

REPORT INFORMATION
  Report Type: Spontaneous
  Country: DK (occurrence: DK)
  Receive Date: 20160728
  Receipt Date: 20160805
  Transmission Date: 20161109
  Serious: Yes (Disabling, Other)
  Sender: FDA-Public Use
  Company Number: DK-ACCORD-042699

PATIENT
  Age: 28 Year
  Sex: Male

DRUGS (6)
  1. IFOSFAMIDE. [Suspect]
     Active Substance: IFOSFAMIDE
     Indication: EWING^S SARCOMA
     Dosage: SIX CYCLES (D) 1-3
  2. PREDNISOLONE. [Concomitant]
     Active Substance: PREDNISOLONE
     Indication: ANTIEMETIC SUPPORTIVE CARE
  3. DOXORUBICIN [Suspect]
     Active Substance: DOXORUBICIN
     Indication: EWING^S SARCOMA
     Dosage: SIX CYCLES;D 1-3
  4. ETOPOSIDE. [Suspect]
     Active Substance: ETOPOSIDE
     Indication: EWING^S SARCOMA
     Dosage: SIX CYCLES; D 1-3
  5. VINCRISTINE [Suspect]
     Active Substance: VINCRISTINE
     Indication: EWING^S SARCOMA
     Dosage: SIX CYCLES D1
  6. DACTINOMYCIN [Suspect]
     Active Substance: DACTINOMYCIN
     Indication: EWING^S SARCOMA
     Dosage: SIX CYCLES; D 1?2

REACTIONS (2)
  - Off label use [Unknown]
  - Osteonecrosis [Recovering/Resolving]

NARRATIVE: CASE EVENT DATE: 201404
